FAERS Safety Report 24281622 (Version 1)
Quarter: 2024Q3

REPORT INFORMATION
  Report Type: Spontaneous
  Country: US (occurrence: None)
  Receive Date: 20240901
  Receipt Date: 20240901
  Transmission Date: 20241016
  Serious: Yes (Hospitalization)
  Sender: Public
  Company Number: None

PATIENT
  Age: 23 Year
  Sex: Male
  Weight: 99 kg

DRUGS (1)
  1. BLINCYTO [Suspect]
     Active Substance: BLINATUMOMAB
     Indication: Acute leukaemia in remission
     Dosage: CONTINOUS DRIP   INTRAVENOUS?
     Route: 042
     Dates: start: 20240704, end: 20240801

REACTIONS (4)
  - Treatment failure [None]
  - Leukaemia recurrent [None]
  - Chest pain [None]
  - Fracture [None]

NARRATIVE: CASE EVENT DATE: 20240715
